FAERS Safety Report 24755179 (Version 1)
Quarter: 2024Q4

REPORT INFORMATION
  Report Type: Spontaneous
  Country: US (occurrence: None)
  Receive Date: 20241218
  Receipt Date: 20241218
  Transmission Date: 20250115
  Serious: Yes (Hospitalization)
  Sender: Public
  Company Number: None

PATIENT
  Age: 29 Year
  Sex: Male

DRUGS (3)
  1. DOLUTEGRAVIR [Suspect]
     Active Substance: DOLUTEGRAVIR
     Indication: HIV infection
     Dosage: FREQUENCY : TWICE A DAY;?
     Route: 048
     Dates: start: 20241029, end: 20241106
  2. EMTRICITABINE AND TENOFOVIR DISOPROXIL FUMARATE [Suspect]
     Active Substance: EMTRICITABINE\TENOFOVIR DISOPROXIL FUMARATE
     Dosage: FREQUENCY : DAILY;?
     Route: 048
     Dates: start: 20241029, end: 20241106
  3. RIFAMPIN [Suspect]
     Active Substance: RIFAMPIN

REACTIONS (3)
  - Rhabdomyolysis [None]
  - Therapy change [None]
  - Drug interaction [None]

NARRATIVE: CASE EVENT DATE: 20241106
